FAERS Safety Report 5670712-0 (Version None)
Quarter: 2008Q1

REPORT INFORMATION
  Report Type: 
  Country: None (occurrence: None)
  Receive Date: 20080317
  Receipt Date: 20080317
  Transmission Date: 20080703
  Serious: No
  Sender: FDA-Public Use
  Company Number: None

PATIENT
  Sex: Female
  Weight: 66.6788 kg

DRUGS (1)
  1. LIPITOR [Suspect]
     Indication: BLOOD CHOLESTEROL INCREASED
     Dosage: 80 MGS 1 AT NIGHT 4 OR 5 YEARS
     Dates: start: 19931101, end: 20071228

REACTIONS (7)
  - ARTHRALGIA [None]
  - BLOOD CHOLESTEROL INCREASED [None]
  - CONTUSION [None]
  - INSOMNIA [None]
  - LIBIDO DECREASED [None]
  - MUSCLE SPASMS [None]
  - MYALGIA [None]
